FAERS Safety Report 9689423 (Version 1)
Quarter: 2013Q4

REPORT INFORMATION
  Report Type: Spontaneous
  Country: US (occurrence: US)
  Receive Date: 20131114
  Receipt Date: 20131114
  Transmission Date: 20140711
  Serious: Yes (Hospitalization)
  Sender: FDA-Public Use
  Company Number: PHHY2013US128627

PATIENT
  Age: 43 Year
  Sex: Male

DRUGS (2)
  1. MIRTAZAPINE [Suspect]
     Dosage: 25 TABLETS OF 15 MG (TOTAL 375 MG)
  2. ETHANOL [Concomitant]

REACTIONS (7)
  - Left ventricular hypertrophy [Unknown]
  - Suicide attempt [Unknown]
  - Toxicity to various agents [Unknown]
  - Sinus tachycardia [Unknown]
  - Tachycardia [Unknown]
  - Lethargy [Unknown]
  - Overdose [Unknown]
